FAERS Safety Report 24017420 (Version 1)
Quarter: 2024Q2

REPORT INFORMATION
  Report Type: Spontaneous
  Country: US (occurrence: US)
  Receive Date: 20240627
  Receipt Date: 20240627
  Transmission Date: 20240716
  Serious: Yes (Hospitalization, Other)
  Sender: FDA-Public Use
  Company Number: US-GSKCCFUS-Case-02038094_AE-113005

PATIENT

DRUGS (3)
  1. ADVAIR HFA [Suspect]
     Active Substance: FLUTICASONE PROPIONATE\SALMETEROL XINAFOATE
     Indication: Product used for unknown indication
     Dosage: 110 ?G
  2. ARNUITY ELLIPTA [Suspect]
     Active Substance: FLUTICASONE FUROATE
     Indication: Product used for unknown indication
     Dosage: 100 ?G
  3. ARNUITY ELLIPTA [Suspect]
     Active Substance: FLUTICASONE FUROATE
     Dosage: 200 ?G

REACTIONS (6)
  - Myocardial infarction [Unknown]
  - Thinking abnormal [Unknown]
  - Dyspnoea [Unknown]
  - Somnolence [Unknown]
  - Loss of personal independence in daily activities [Unknown]
  - Drug ineffective [Unknown]
